FAERS Safety Report 22595167 (Version 2)
Quarter: 2024Q3

REPORT INFORMATION
  Report Type: Spontaneous
  Country: US (occurrence: US)
  Receive Date: 20230613
  Receipt Date: 20240828
  Transmission Date: 20241016
  Serious: No
  Sender: PFIZER
  Company Number: US-PFIZER INC-PV202300103149

PATIENT
  Age: 33 Year
  Sex: Male

DRUGS (2)
  1. OXBRYTA [Suspect]
     Active Substance: VOXELOTOR
     Dosage: 1000 MG, DAILY
     Route: 048
  2. OXBRYTA [Suspect]
     Active Substance: VOXELOTOR
     Dosage: 1500 MG, 1X/DAY ((500MG 3 TABLETS ONCE DAILY)
     Route: 048
     Dates: start: 202302, end: 2024

REACTIONS (2)
  - Diarrhoea [Unknown]
  - Off label use [Unknown]
